FAERS Safety Report 5757292-6 (Version None)
Quarter: 2008Q2

REPORT INFORMATION
  Report Type: 
  Country: None (occurrence: None)
  Receive Date: 20080603
  Receipt Date: 20080528
  Transmission Date: 20081010
  Serious: Yes (Hospitalization)
  Sender: FDA-Public Use
  Company Number: GB-ROCHE-567288

PATIENT
  Sex: Male
  Weight: 98.8 kg

DRUGS (1)
  1. ORLISTAT [Suspect]
     Route: 048
     Dates: start: 20071119, end: 20080430

REACTIONS (1)
  - HERNIA [None]
